FAERS Safety Report 9450875 (Version 1)
Quarter: 2013Q3

REPORT INFORMATION
  Report Type: Report from Study
  Country: TW (occurrence: TW)
  Receive Date: 20130809
  Receipt Date: 20130809
  Transmission Date: 20140515
  Serious: Yes (Other)
  Sender: FDA-Public Use
  Company Number: TW-BAYER-2013-094358

PATIENT
  Sex: 0

DRUGS (2)
  1. MOXIFLOXACIN IV [Suspect]
     Indication: ABDOMINAL INFECTION
     Dosage: 400 MG, QD
     Route: 042
  2. MOXIFLOXACIN ORAL [Suspect]
     Indication: ABDOMINAL INFECTION
     Dosage: 400 MG, QD
     Route: 048

REACTIONS (2)
  - Anastomotic leak [None]
  - Treatment failure [None]
